FAERS Safety Report 20859845 (Version 1)
Quarter: 2022Q2

REPORT INFORMATION
  Report Type: Spontaneous
  Country: CA (occurrence: CA)
  Receive Date: 20220523
  Receipt Date: 20220523
  Transmission Date: 20220720
  Serious: Yes (Hospitalization, Other)
  Sender: FDA-Public Use
  Company Number: CA-SAMSUNG BIOEPIS-SB-2022-11987

PATIENT
  Age: 28 Year
  Sex: Female

DRUGS (2)
  1. ADALIMUMAB [Suspect]
     Active Substance: ADALIMUMAB
     Indication: Crohn^s disease
     Route: 058
  2. PURINETHOL [Concomitant]
     Active Substance: MERCAPTOPURINE
     Indication: Product used for unknown indication
     Dosage: UNKNOWN
     Route: 065

REACTIONS (10)
  - Abdominal discomfort [Unknown]
  - Candida infection [Unknown]
  - Condition aggravated [Unknown]
  - Crohn^s disease [Unknown]
  - Diarrhoea [Unknown]
  - Dyspnoea [Unknown]
  - Feeding disorder [Unknown]
  - Hypokalaemia [Unknown]
  - Drug ineffective [Unknown]
  - Product dose omission issue [Unknown]
